FAERS Safety Report 8923022 (Version 4)
Quarter: 2013Q1

REPORT INFORMATION
  Report Type: Spontaneous
  Country: US (occurrence: US)
  Receive Date: 20121123
  Receipt Date: 20130201
  Transmission Date: 20140127
  Serious: Yes (Death, Other)
  Sender: FDA-Public Use
  Company Number: US-JNJFOC-20121107666

PATIENT
  Sex: 0

DRUGS (10)
  1. PARACETAMOL [Suspect]
     Indication: PAIN
     Dosage: 500 MG/TABLET
     Route: 048
  2. OXYCODONE WITH PARACETAMOL [Suspect]
     Indication: PAIN
     Route: 048
  3. PARACETAMOL [Suspect]
     Indication: PAIN
     Dosage: 325 MG
     Route: 048
  4. PARACETAMOL [Suspect]
     Indication: PAIN
     Dosage: 500 MG
     Route: 048
  5. PARACETAMOL [Suspect]
     Route: 048
  6. PARACETAMOL [Suspect]
     Indication: PAIN
     Dosage: DOSE UNSPECIFIED
     Route: 048
  7. ACETAMINOPHEN/BUTALBITAL/CAFFEINE [Suspect]
     Indication: PAIN
     Route: 048
  8. ACETAMINOPHEN WITH HYDROCODONE [Suspect]
     Indication: PAIN
     Route: 048
  9. PARACETAMOL [Suspect]
     Indication: PAIN
     Dosage: 750 MG
     Route: 048
  10. PARACETAMOL [Suspect]
     Indication: PAIN
     Dosage: 300 MG
     Route: 048

REACTIONS (4)
  - Death [Fatal]
  - Accidental overdose [Unknown]
  - Liver injury [Unknown]
  - Drug administration error [Unknown]
